FAERS Safety Report 7758356-8 (Version None)
Quarter: 2011Q3

REPORT INFORMATION
  Report Type: 
  Country: None (occurrence: None)
  Receive Date: 20110825
  Receipt Date: 20110719
  Transmission Date: 20111222
  Serious: Yes (Hospitalization)
  Sender: FDA-Public Use
  Company Number: 332117

PATIENT
  Sex: Female

DRUGS (5)
  1. VICTOZA [Suspect]
     Indication: TYPE 2 DIABETES MELLITUS
     Dosage: 1.2 MG, QD, BEFORE BREAKFAST, SUBCUTANEOUS
     Route: 058
     Dates: start: 20110101, end: 20110719
  2. HEPARIN [Concomitant]
  3. METFORMIN HCL [Concomitant]
  4. ASPIRIN [Concomitant]
  5. LANTUS /01483501/ (NISULIN GLARGINE) [Concomitant]

REACTIONS (6)
  - ERYTHEMA [None]
  - WHITE BLOOD CELL COUNT INCREASED [None]
  - BLOOD PRESSURE INCREASED [None]
  - BLOOD GLUCOSE DECREASED [None]
  - DECREASED APPETITE [None]
  - FEELING HOT [None]
